FAERS Safety Report 7908041-4 (Version None)
Quarter: 2011Q4

REPORT INFORMATION
  Report Type: 
  Country: None (occurrence: None)
  Receive Date: 20111110
  Receipt Date: 20111105
  Transmission Date: 20120403
  Serious: Yes (Other)
  Sender: FDA-Public Use
  Company Number: US-BRISTOL-MYERS SQUIBB COMPANY-16216871

PATIENT
  Age: 66 Year
  Sex: Female
  Weight: 73 kg

DRUGS (1)
  1. IPILIMUMAB [Suspect]
     Indication: MALIGNANT MELANOMA
     Dosage: IPILI:10MG/KGIV DAY1Q12WKS WITHDRAWN FROM PROTOCOL: 25OCT11
     Route: 042
     Dates: start: 20110803, end: 20111005

REACTIONS (4)
  - ARTHRALGIA [None]
  - C-REACTIVE PROTEIN INCREASED [None]
  - RED BLOOD CELL SEDIMENTATION RATE INCREASED [None]
  - JOINT RANGE OF MOTION DECREASED [None]
